FAERS Safety Report 23039951 (Version 1)
Quarter: 2023Q4

REPORT INFORMATION
  Report Type: Spontaneous
  Country: FR (occurrence: FR)
  Receive Date: 20231006
  Receipt Date: 20231006
  Transmission Date: 20240109
  Serious: Yes (Hospitalization)
  Sender: FDA-Public Use
  Company Number: None

PATIENT
  Age: 68 Year
  Sex: Male

DRUGS (16)
  1. VALGANCICLOVIR HYDROCHLORIDE [Suspect]
     Active Substance: VALGANCICLOVIR HYDROCHLORIDE
     Indication: Pneumonia cytomegaloviral
     Dosage: BID
     Route: 048
     Dates: start: 20230718, end: 20230726
  2. ATOVAQUONE [Suspect]
     Active Substance: ATOVAQUONE
     Indication: Pneumocystis jirovecii pneumonia
     Dosage: 750 MG/5 ML,DRINKABLE SUSPENSION
     Route: 048
     Dates: start: 20230629, end: 20230726
  3. PANTOPRAZOLE [Suspect]
     Active Substance: PANTOPRAZOLE
     Indication: Gastrooesophageal reflux disease
     Route: 048
     Dates: start: 20230612, end: 20230726
  4. BISOPROLOL [Concomitant]
     Active Substance: BISOPROLOL\BISOPROLOL FUMARATE
  5. CEFEPIME [Concomitant]
     Active Substance: CEFEPIME HYDROCHLORIDE
  6. SUFENTA [Concomitant]
     Active Substance: SUFENTANIL CITRATE
  7. PROPOFOL [Concomitant]
     Active Substance: PROPOFOL
  8. AMIKACIN [Concomitant]
     Active Substance: AMIKACIN
  9. ZOLPIDEM [Concomitant]
     Active Substance: ZOLPIDEM TARTRATE
  10. LOVENOX [Concomitant]
     Active Substance: ENOXAPARIN SODIUM
  11. INSULIN NOS [Concomitant]
     Active Substance: INSULIN NOS
  12. MEROPENEM [Concomitant]
     Active Substance: MEROPENEM
  13. HEPARIN SODIUM [Concomitant]
     Active Substance: HEPARIN SODIUM
  14. COTRIMOXAZOLE [Concomitant]
     Active Substance: SULFAMETHOXAZOLE\TRIMETHOPRIM
  15. METHYLPREDNISOLONE [Concomitant]
     Active Substance: METHYLPREDNISOLONE
  16. TACROLIMUS [Concomitant]
     Active Substance: TACROLIMUS

REACTIONS (2)
  - Agranulocytosis [Recovering/Resolving]
  - Off label use [Unknown]

NARRATIVE: CASE EVENT DATE: 20230718
